FAERS Safety Report 6129175-3 (Version None)
Quarter: 2009Q1

REPORT INFORMATION
  Report Type: 
  Country: None (occurrence: None)
  Receive Date: 20090324
  Receipt Date: 20090318
  Transmission Date: 20090719
  Serious: Yes (Other)
  Sender: FDA-Public Use
  Company Number: US-BAYER-200911948NA

PATIENT
  Age: 24 Year
  Sex: Female
  Weight: 68 kg

DRUGS (3)
  1. MIRENA [Suspect]
     Indication: CONTRACEPTION
     Route: 015
     Dates: start: 20070406, end: 20090123
  2. ADDERALL 10 [Concomitant]
     Dosage: TOTAL DAILY DOSE: 10 MG
     Route: 048
  3. ZOLOFT [Concomitant]
     Dosage: TOTAL DAILY DOSE: 75 MG
     Route: 048

REACTIONS (3)
  - ABORTION SPONTANEOUS [None]
  - GENITAL HAEMORRHAGE [None]
  - PREGNANCY WITH CONTRACEPTIVE DEVICE [None]
